FAERS Safety Report 16223701 (Version 1)
Quarter: 2019Q2

REPORT INFORMATION
  Report Type: Spontaneous
  Country: US (occurrence: US)
  Receive Date: 20190422
  Receipt Date: 20190422
  Transmission Date: 20190711
  Serious: Yes (Other)
  Sender: FDA-Public Use
  Company Number: US-PFIZER INC-2018379763

PATIENT
  Age: 46 Year
  Sex: Female
  Weight: 66 kg

DRUGS (4)
  1. WARFARIN [Concomitant]
     Active Substance: WARFARIN
     Indication: DEEP VEIN THROMBOSIS
     Dosage: 5 MG, 1X/DAY
     Route: 048
  2. LYRICA [Suspect]
     Active Substance: PREGABALIN
     Indication: PAIN
  3. LYRICA [Suspect]
     Active Substance: PREGABALIN
     Indication: BACK PAIN
     Dosage: 200 MG, 3X/DAY
     Route: 048
     Dates: start: 20180905, end: 201904
  4. TRAMADOL. [Concomitant]
     Active Substance: TRAMADOL
     Indication: PAIN
     Dosage: 100 MG, 2X/DAY [TWO TABLETS TWICE DAILY BY MOUTH]
     Route: 048

REACTIONS (2)
  - Respiration abnormal [Unknown]
  - Thrombosis [Unknown]

NARRATIVE: CASE EVENT DATE: 201904
